FAERS Safety Report 4978086-5 (Version None)
Quarter: 2006Q2

REPORT INFORMATION
  Report Type: 
  Country: None (occurrence: None)
  Receive Date: 20060417
  Receipt Date: 20060405
  Transmission Date: 20061013
  Serious: Yes (Other)
  Sender: FDA-Public Use
  Company Number: 8016144

PATIENT
  Age: 56 Year
  Sex: Female

DRUGS (5)
  1. KEPPRA [Suspect]
     Dosage: 750 MG/ 2/D PO
     Route: 048
  2. KEPPRA [Suspect]
     Dosage: 1125 MG PO
     Route: 048
     Dates: start: 20060301
  3. AVAPRO [Concomitant]
  4. CLARITIN [Concomitant]
  5. PRILOSEC [Concomitant]

REACTIONS (4)
  - ALOPECIA [None]
  - CHRONIC LYMPHOCYTIC LEUKAEMIA [None]
  - HAIR TEXTURE ABNORMAL [None]
  - HYPOTRICHOSIS [None]
